FAERS Safety Report 5661411-X (Version None)
Quarter: 2008Q1

REPORT INFORMATION
  Report Type: 
  Country: None (occurrence: None)
  Receive Date: 20080311
  Receipt Date: 20080228
  Transmission Date: 20080703
  Serious: Yes (Other)
  Sender: FDA-Public Use
  Company Number: US-ELI_LILLY_AND_COMPANY-US200802006901

PATIENT
  Sex: Female

DRUGS (1)
  1. STRATTERA [Suspect]
     Indication: ASPERGER'S DISORDER
     Dates: start: 20020101

REACTIONS (2)
  - EOSINOPHILIC OESOPHAGITIS [None]
  - REMOVAL OF FOREIGN BODY FROM THROAT [None]
